FAERS Safety Report 16177685 (Version 1)
Quarter: 2019Q2

REPORT INFORMATION
  Report Type: Report from Study
  Country: CZ (occurrence: CZ)
  Receive Date: 20190410
  Receipt Date: 20190410
  Transmission Date: 20190711
  Serious: Yes (Death, Other)
  Sender: FDA-Public Use
  Company Number: CZ-SA-2019SA096552

PATIENT
  Sex: Female

DRUGS (5)
  1. DOCETAXEL. [Suspect]
     Active Substance: DOCETAXEL
  2. CISPLATIN. [Suspect]
     Active Substance: CISPLATIN
  3. 5-FLUOROURACIL [FLUOROURACIL SODIUM] [Suspect]
     Active Substance: FLUOROURACIL SODIUM
     Dosage: UNK, TILL 1998
  4. MITOMYCIN C [Suspect]
     Active Substance: MITOMYCIN
  5. FOLINIC ACID [Suspect]
     Active Substance: LEUCOVORIN
     Dosage: UNK UNK, QCY

REACTIONS (2)
  - Metastases to lung [Fatal]
  - Disease recurrence [Fatal]

NARRATIVE: CASE EVENT DATE: 200104
